FAERS Safety Report 18564649 (Version 1)
Quarter: 2020Q4

REPORT INFORMATION
  Report Type: Spontaneous
  Country: FR (occurrence: FR)
  Receive Date: 20201201
  Receipt Date: 20201201
  Transmission Date: 20210114
  Serious: Yes (Other)
  Sender: FDA-Public Use
  Company Number: FR-MYLANLABS-2020M1097019

PATIENT
  Age: 72 Year
  Sex: Female
  Weight: 95 kg

DRUGS (1)
  1. HULIO [Suspect]
     Active Substance: ADALIMUMAB-FKJP
     Indication: AXIAL SPONDYLOARTHRITIS
     Dosage: 40 MILLIGRAM, BIWEEKLY
     Route: 058
     Dates: start: 20190716, end: 20200813

REACTIONS (2)
  - Cholestasis [Recovering/Resolving]
  - Hepatocellular injury [Recovering/Resolving]

NARRATIVE: CASE EVENT DATE: 201908
